FAERS Safety Report 4498512-8 (Version None)
Quarter: 2004Q4

REPORT INFORMATION
  Report Type: 
  Country: None (occurrence: None)
  Receive Date: 20041105
  Receipt Date: 20041029
  Transmission Date: 20050328
  Serious: Yes (Hospitalization)
  Sender: FDA-Public Use
  Company Number: T04-USA-07232-01

PATIENT
  Age: 83 Year
  Sex: Male
  Weight: 81.6475 kg

DRUGS (12)
  1. LEXAPRO [Suspect]
     Indication: DEPRESSION
     Dosage: 10 MG QD PO
     Route: 048
     Dates: start: 20041013, end: 20041020
  2. PREVACID [Concomitant]
  3. DETROL LA [Concomitant]
  4. DIGOXIN [Concomitant]
  5. LASIX [Concomitant]
  6. COUMADIN [Concomitant]
  7. LIPITOR [Concomitant]
  8. LISINOPRIL [Concomitant]
  9. POTASSIUM [Concomitant]
  10. REGLAN [Concomitant]
  11. PREDNISONE [Concomitant]
  12. CALCIUM WITH VITAMIN D [Concomitant]

REACTIONS (5)
  - ABASIA [None]
  - ASTHENIA [None]
  - DEHYDRATION [None]
  - DYSSTASIA [None]
  - MARKEDLY REDUCED DIETARY INTAKE [None]
